FAERS Safety Report 7798372-3 (Version None)
Quarter: 2011Q4

REPORT INFORMATION
  Report Type: 
  Country: None (occurrence: None)
  Receive Date: 20111005
  Receipt Date: 20111003
  Transmission Date: 20120403
  Serious: Yes (Other)
  Sender: FDA-Public Use
  Company Number: US-PFIZER INC-2011236023

PATIENT
  Sex: Male
  Weight: 108.84 kg

DRUGS (2)
  1. GEODON [Suspect]
     Indication: BIPOLAR DISORDER
     Dosage: 80 MG, 1X/DAY
     Route: 048
     Dates: start: 20060101
  2. GEODON [Suspect]
     Indication: PARANOIA
     Dosage: 160 MG, 1X/DAY
     Route: 048
     Dates: start: 20070101

REACTIONS (2)
  - INSOMNIA [None]
  - RESTLESS LEGS SYNDROME [None]
